FAERS Safety Report 5276871-6 (Version None)
Quarter: 2007Q1

REPORT INFORMATION
  Report Type: 
  Country: None (occurrence: None)
  Receive Date: 20070327
  Receipt Date: 20070319
  Transmission Date: 20070707
  Serious: Yes (Death)
  Sender: FDA-Public Use
  Company Number: HQWYE048419MAR07

PATIENT
  Age: 70 Year
  Sex: Female

DRUGS (1)
  1. ENBREL [Suspect]
     Indication: RHEUMATOID ARTHRITIS
     Dosage: UNKNOWN
     Route: 058
     Dates: start: 20060908, end: 20070201

REACTIONS (4)
  - ABDOMINAL SYMPTOM [None]
  - ANOREXIA [None]
  - CONSTIPATION [None]
  - SHOCK [None]
